FAERS Safety Report 8487486-0 (Version None)
Quarter: 2012Q2

REPORT INFORMATION
  Report Type: 
  Country: None (occurrence: None)
  Receive Date: 20120627
  Receipt Date: 20120612
  Transmission Date: 20120825
  Serious: Yes (Life-Threatening, Hospitalization)
  Sender: FDA-Public Use
  Company Number: AML020120008

PATIENT
  Age: 50 Year
  Sex: Female
  Weight: 137 kg

DRUGS (2)
  1. LOSARTAN POTASSIUM [Suspect]
     Indication: OVERDOSE
     Dosage: 16640 MG, UNK, ORAL
     Route: 048
  2. AMLODIPINE BESYLATE [Suspect]
     Indication: OVERDOSE
     Dosage: 770 MG, UNK, ORAL
     Route: 048

REACTIONS (11)
  - ANURIA [None]
  - METABOLIC ACIDOSIS [None]
  - HYPOTENSION [None]
  - HYPOXIA [None]
  - VOMITING [None]
  - MULTIPLE DRUG OVERDOSE [None]
  - BLOOD GLUCOSE INCREASED [None]
  - NO THERAPEUTIC RESPONSE [None]
  - PULMONARY OEDEMA [None]
  - RENAL IMPAIRMENT [None]
  - BODY TEMPERATURE DECREASED [None]
